FAERS Safety Report 6071420-7 (Version None)
Quarter: 2009Q1

REPORT INFORMATION
  Report Type: 
  Country: None (occurrence: None)
  Receive Date: 20090204
  Receipt Date: 20090127
  Transmission Date: 20090719
  Serious: Yes (Other)
  Sender: FDA-Public Use
  Company Number: 2009SP002070

PATIENT
  Sex: Male

DRUGS (1)
  1. ASMANEX TWISTHALER [Suspect]
     Indication: DRUG USE FOR UNKNOWN INDICATION
     Dosage: PO
     Route: 048

REACTIONS (5)
  - EXPOSURE TO CONTAMINATED DEVICE [None]
  - MUSCLE ATROPHY [None]
  - MYOPATHY [None]
  - PRODUCT CONTAMINATION [None]
  - TREMOR [None]
